FAERS Safety Report 10337353 (Version 1)
Quarter: 2014Q3

REPORT INFORMATION
  Report Type: Spontaneous
  Country: US (occurrence: US)
  Receive Date: 20140723
  Receipt Date: 20140723
  Transmission Date: 20150326
  Serious: Yes (Other)
  Sender: FDA-Public Use
  Company Number: US-MYLANLABS-2014S1014591

PATIENT

DRUGS (3)
  1. BENADRYL [Suspect]
     Active Substance: DIPHENHYDRAMINE HYDROCHLORIDE
  2. OXYCODONE [Concomitant]
     Active Substance: OXYCODONE
     Dosage: UNK
  3. FENTANYL TRANSDERMAL SYSTEM [Suspect]
     Active Substance: FENTANYL
     Indication: PAIN
     Dosage: 75 ?G,QH
     Route: 062

REACTIONS (9)
  - Drug withdrawal syndrome [Recovered/Resolved]
  - Fall [Recovered/Resolved]
  - Lower limb fracture [Not Recovered/Not Resolved]
  - Sedation [Not Recovered/Not Resolved]
  - Localised infection [Not Recovered/Not Resolved]
  - Rash pruritic [Not Recovered/Not Resolved]
  - Overdose [Recovered/Resolved]
  - Confusional state [Recovered/Resolved]
  - Wound haemorrhage [Not Recovered/Not Resolved]

NARRATIVE: CASE EVENT DATE: 2014
